FAERS Safety Report 5399149-9 (Version None)
Quarter: 2007Q3

REPORT INFORMATION
  Report Type: 
  Country: None (occurrence: None)
  Receive Date: 20070725
  Receipt Date: 20070725
  Transmission Date: 20080115
  Serious: No
  Sender: FDA-Public Use
  Company Number: None

PATIENT
  Sex: Female
  Weight: 57.8 kg

DRUGS (1)
  1. TEMOZOLOMIDE [Suspect]
     Dosage: 3840 MG

REACTIONS (1)
  - THROMBOCYTOPENIA [None]
